FAERS Safety Report 14937716 (Version 2)
Quarter: 2018Q2

REPORT INFORMATION
  Report Type: Spontaneous
  Country: US (occurrence: US)
  Receive Date: 20180525
  Receipt Date: 20180606
  Transmission Date: 20180711
  Serious: Yes (Life-Threatening, Hospitalization, Other)
  Sender: FDA-Public Use
  Company Number: PHEH2018US020043

PATIENT
  Sex: Male

DRUGS (1)
  1. VOTRIENT [Suspect]
     Active Substance: PAZOPANIB HYDROCHLORIDE
     Indication: THYROID CANCER
     Dosage: 4 DF, QD (ON EMPTY STOMACH AT LEAST 1 HOUR BEFORE OR 2 HOURS AFTER A MEAL)
     Route: 048

REACTIONS (8)
  - Red blood cell count increased [Not Recovered/Not Resolved]
  - Product use in unapproved indication [Unknown]
  - Flank pain [Recovered/Resolved]
  - Chest pain [Recovered/Resolved]
  - Renal impairment [Not Recovered/Not Resolved]
  - Renal failure [Recovered/Resolved]
  - Red blood cell count increased [Recovered/Resolved]
  - Swollen tongue [Recovered/Resolved]
